FAERS Safety Report 8789219 (Version 1)
Quarter: 2012Q4

REPORT INFORMATION
  Report Type: Spontaneous
  Country: DK (occurrence: None)
  Receive Date: 20120905
  Receipt Date: 20120905
  Transmission Date: 20130627
  Serious: Yes (Death)
  Sender: FDA-Public Use
  Company Number: 2012MA010487

PATIENT
  Age: 60 Year
  Sex: Female

DRUGS (9)
  1. METFORMIN HYDROCHLORIDE [Suspect]
     Indication: TYPE II DIABETES MELLITUS
     Route: 048
     Dates: start: 20100101, end: 20120127
  2. PANTORC [Concomitant]
  3. ENALAPRIL [Concomitant]
  4. FUROSEMIDE [Concomitant]
  5. BISOPROLOL [Concomitant]
  6. ACETYLSALICYLIC ACID [Concomitant]
  7. AMLODIPINE [Concomitant]
  8. STATINS [Concomitant]
  9. LACTIC ACID [Concomitant]

REACTIONS (20)
  - Lactic acidosis [None]
  - Toxicity to various agents [None]
  - Dizziness [None]
  - Alanine aminotransferase increased [None]
  - Aspartate aminotransferase increased [None]
  - Azotaemia [None]
  - Myoglobin blood increased [None]
  - Blood creatine phosphokinase increased [None]
  - Fibrin D dimer increased [None]
  - Blood creatine phosphokinase MB increased [None]
  - Haemoglobin decreased [None]
  - Activated partial thromboplastin time prolonged [None]
  - Prothrombin time prolonged [None]
  - White blood cell count increased [None]
  - Blood sodium increased [None]
  - Dialysis [None]
  - Coagulopathy [None]
  - Dyspnoea [None]
  - Abdominal pain [None]
  - Vomiting [None]
